FAERS Safety Report 9295153 (Version 2)
Quarter: 2013Q4

REPORT INFORMATION
  Report Type: Spontaneous
  Country: DK (occurrence: DK)
  Receive Date: 20130517
  Receipt Date: 20131203
  Transmission Date: 20140711
  Serious: Yes (Other)
  Sender: FDA-Public Use
  Company Number: PHHY2013DK047779

PATIENT
  Age: 69 Year
  Sex: Female

DRUGS (4)
  1. ZOMETA [Suspect]
     Indication: PLASMA CELL MYELOMA
     Dosage: 4 MG
     Route: 042
     Dates: start: 20110929
  2. PAMIDRONATE [Suspect]
     Indication: PLASMA CELL MYELOMA
     Dosage: 30 MG, UNK
     Route: 042
     Dates: start: 20120115, end: 20130111
  3. PAMIDRONATE [Suspect]
     Dosage: 30 MG, UNK
     Route: 042
     Dates: start: 20120222, end: 20130523
  4. CORTICOSTEROIDS [Concomitant]
     Dosage: UNK UKN, UNK

REACTIONS (5)
  - Osteonecrosis of jaw [Not Recovered/Not Resolved]
  - Exposed bone in jaw [Unknown]
  - Gingivitis [Unknown]
  - Infection [Unknown]
  - Bone lesion [Unknown]
